FAERS Safety Report 5942559-9 (Version None)
Quarter: 2008Q4

REPORT INFORMATION
  Report Type: 
  Country: None (occurrence: None)
  Receive Date: 20081105
  Receipt Date: 20081030
  Transmission Date: 20090506
  Serious: Yes (Hospitalization, Disabling, Other)
  Sender: FDA-Public Use
  Company Number: US-PFIZER INC-2008091953

PATIENT
  Sex: Female
  Weight: 79 kg

DRUGS (9)
  1. CELEBREX [Suspect]
     Indication: ARTHRITIS
     Dates: end: 20080101
  2. AMIODARONE HCL [Concomitant]
  3. CARVEDILOL [Concomitant]
  4. SIMVASTATIN [Concomitant]
     Indication: BLOOD CHOLESTEROL INCREASED
  5. DOXAZOSIN MESYLATE [Concomitant]
  6. PLAVIX [Concomitant]
     Dosage: DAILY DOSE:75MG
  7. AVANDIA [Concomitant]
  8. HYZAAR [Concomitant]
  9. ACETYLSALICYLIC ACID SRT [Concomitant]
     Dosage: DAILY DOSE:81MG

REACTIONS (5)
  - AMNESIA [None]
  - CEREBROVASCULAR ACCIDENT [None]
  - HYPOAESTHESIA [None]
  - MALAISE [None]
  - MYOCARDIAL INFARCTION [None]
